FAERS Safety Report 21881761 (Version 1)
Quarter: 2023Q1

REPORT INFORMATION
  Report Type: Spontaneous
  Country: FR (occurrence: FR)
  Receive Date: 20230119
  Receipt Date: 20230119
  Transmission Date: 20230418
  Serious: Yes (Hospitalization)
  Sender: FDA-Public Use
  Company Number: FR-SUN PHARMACEUTICAL INDUSTRIES LTD-2023RR-373779

PATIENT
  Age: 23 Year
  Sex: Female

DRUGS (11)
  1. PANTOPRAZOLE [Suspect]
     Active Substance: PANTOPRAZOLE
     Indication: Antacid therapy
     Dosage: 1 DOSAGE FORM, TOTAL 1
     Route: 040
     Dates: start: 201604, end: 201604
  2. ONDANSETRON [Suspect]
     Active Substance: ONDANSETRON
     Indication: Antiemetic supportive care
     Dosage: 1 DOSAGE FORM, IN TOTAL 1
     Route: 040
     Dates: start: 201604, end: 201604
  3. METHYLPREDNISOLONE ACETATE [Suspect]
     Active Substance: METHYLPREDNISOLONE ACETATE
     Indication: General anaesthesia
     Dosage: 1 DOSAGE FORM, TOTAL 1
     Route: 040
     Dates: start: 201604, end: 201604
  4. AUGMENTIN [Suspect]
     Active Substance: AMOXICILLIN\CLAVULANATE POTASSIUM
     Indication: Antibiotic prophylaxis
     Dosage: 1 DOSAGE FORM, TOTAL 1
     Route: 040
     Dates: start: 201604, end: 201604
  5. SUFENTANIL [Suspect]
     Active Substance: SUFENTANIL
     Indication: General anaesthesia
     Dosage: 1 DOSAGE FORM, TOTAL 1
     Route: 040
     Dates: start: 201604, end: 201604
  6. PROPOFOL [Suspect]
     Active Substance: PROPOFOL
     Indication: General anaesthesia
     Dosage: 1 DOSAGE FORM, TOTAL 1
     Route: 040
     Dates: start: 201604, end: 201604
  7. KETOPROFEN [Suspect]
     Active Substance: KETOPROFEN
     Indication: Analgesic intervention supportive therapy
     Dosage: 1 DOSAGE FORM, TOTAL 1
     Route: 040
     Dates: start: 201604, end: 201604
  8. TRAMADOL HYDROCHLORIDE [Suspect]
     Active Substance: TRAMADOL HYDROCHLORIDE
     Indication: Analgesic intervention supportive therapy
     Dosage: 1 DOSAGE FORM, TOTAL 1
     Route: 040
     Dates: start: 201604, end: 201604
  9. DROPERIDOL [Suspect]
     Active Substance: DROPERIDOL
     Indication: General anaesthesia
     Dosage: 1 DOSAGE FORM, TOTAL 1
     Route: 040
     Dates: start: 201604, end: 201604
  10. DEXAMETHASONE [Suspect]
     Active Substance: DEXAMETHASONE
     Indication: Antiinflammatory therapy
     Dosage: 1 DOSAGE FORM, TOTAL 1
     Route: 040
     Dates: start: 201604, end: 201604
  11. KETAMINE [Suspect]
     Active Substance: KETAMINE
     Indication: General anaesthesia
     Dosage: 1 DOSAGE FORM
     Route: 040
     Dates: start: 201604, end: 201604

REACTIONS (2)
  - Type I hypersensitivity [Recovered/Resolved]
  - Allergy test negative [Recovered/Resolved]

NARRATIVE: CASE EVENT DATE: 20160401
